FAERS Safety Report 7555329-5 (Version None)
Quarter: 2011Q2

REPORT INFORMATION
  Report Type: 
  Country: None (occurrence: None)
  Receive Date: 20110617
  Receipt Date: 20110606
  Transmission Date: 20111010
  Serious: Yes (Other)
  Sender: FDA-Public Use
  Company Number: PHHY2011US05971

PATIENT
  Sex: Female
  Weight: 23 kg

DRUGS (3)
  1. EXJADE [Suspect]
     Indication: HAEMOLYTIC ANAEMIA
     Dosage: 17 MG/KG, QD
     Route: 048
  2. EXJADE [Suspect]
     Indication: IRON OVERLOAD
     Dosage: 500 MG DAILY
     Route: 048
  3. EXJADE [Suspect]
     Dosage: 375 MG, DAILY
     Route: 048
     Dates: start: 20100801, end: 20101201

REACTIONS (4)
  - PYRUVATE KINASE DEFICIENCY ANAEMIA [None]
  - COLOUR BLINDNESS [None]
  - SERUM FERRITIN INCREASED [None]
  - EYE DISORDER [None]
